FAERS Safety Report 4665442-8 (Version None)
Quarter: 2005Q2

REPORT INFORMATION
  Report Type: 
  Country: None (occurrence: None)
  Receive Date: 20050518
  Receipt Date: 20050518
  Transmission Date: 20051028
  Serious: Yes (Hospitalization)
  Sender: FDA-Public Use
  Company Number: None

PATIENT
  Sex: Male

DRUGS (10)
  1. WARFARIN 1 MG [Suspect]
     Indication: ATRIAL FIBRILLATION
     Dosage: 0.5 MG DAILY ORAL
     Route: 048
  2. CAPECITABINE 500 MG [Suspect]
     Indication: COLON CANCER
     Dosage: 2000 MG BID ORAL
     Route: 048
     Dates: start: 20050112, end: 20050125
  3. FELODIPINE [Concomitant]
  4. HYDROCHLOROTHIAZIDE [Concomitant]
  5. LOPERAMIDE HCL [Concomitant]
  6. METOPROLOL [Concomitant]
  7. PRAZOSIN [Concomitant]
  8. VITAMIN D [Concomitant]
  9. APAP TAB [Concomitant]
  10. PSYLLIUM [Concomitant]

REACTIONS (3)
  - DIARRHOEA [None]
  - DIZZINESS [None]
  - INTERNATIONAL NORMALISED RATIO INCREASED [None]
